FAERS Safety Report 25494779 (Version 1)
Quarter: 2025Q2

REPORT INFORMATION
  Report Type: Spontaneous
  Country: US (occurrence: None)
  Receive Date: 20250629
  Receipt Date: 20250629
  Transmission Date: 20250717
  Serious: Yes (Hospitalization)
  Sender: FDA-CTU
  Company Number: None

PATIENT
  Sex: Female

DRUGS (11)
  1. CAPECITABINE [Suspect]
     Active Substance: CAPECITABINE
     Indication: Breast cancer female
     Route: 048
     Dates: start: 20250204
  2. ACETAMINOPHEN [Concomitant]
     Active Substance: ACETAMINOPHEN
  3. BUSPIRONE [Concomitant]
     Active Substance: BUSPIRONE HYDROCHLORIDE
  4. CAPECITABINE [Concomitant]
     Active Substance: CAPECITABINE
  5. DEXAMETHASON TAB [Concomitant]
  6. DOCUSATE [Concomitant]
     Active Substance: DOCUSATE
  7. DOXYCYCLINE HYCLATE [Concomitant]
     Active Substance: DOXYCYCLINE HYCLATE
  8. IBUPROFEN [Concomitant]
     Active Substance: IBUPROFEN
  9. KEYTRUDA [Concomitant]
     Active Substance: PEMBROLIZUMAB
  10. LIDO/PRILOCN CRE [Concomitant]
  11. MAGNESIUM OXIDE [Concomitant]
     Active Substance: MAGNESIUM OXIDE

REACTIONS (2)
  - Fatigue [None]
  - Dyspnoea [None]
